FAERS Safety Report 6179682-2 (Version None)
Quarter: 2009Q2

REPORT INFORMATION
  Report Type: 
  Country: None (occurrence: None)
  Receive Date: 20090505
  Receipt Date: 20090427
  Transmission Date: 20091009
  Serious: Yes (Other)
  Sender: FDA-Public Use
  Company Number: PHHY2009CA07429

PATIENT
  Sex: Female

DRUGS (1)
  1. SANDOSTATIN LAR [Suspect]
     Indication: CARCINOID TUMOUR
     Dosage: 30 MG EVERY 4 WEEKS
     Route: 030
     Dates: start: 20090226

REACTIONS (7)
  - ABDOMINAL DISTENSION [None]
  - DIARRHOEA [None]
  - FATIGUE [None]
  - LIMB DISCOMFORT [None]
  - OEDEMA PERIPHERAL [None]
  - RASH [None]
  - WEIGHT DECREASED [None]
